FAERS Safety Report 13379888 (Version 1)
Quarter: 2017Q1

REPORT INFORMATION
  Report Type: Spontaneous
  Country: US (occurrence: US)
  Receive Date: 20170328
  Receipt Date: 20170328
  Transmission Date: 20170429
  Serious: No
  Sender: FDA-Public Use
  Company Number: US-ELI_LILLY_AND_COMPANY-US201608000988

PATIENT
  Sex: Male
  Weight: 72 kg

DRUGS (3)
  1. CYMBALTA [Suspect]
     Active Substance: DULOXETINE HYDROCHLORIDE
     Indication: PRODUCT USED FOR UNKNOWN INDICATION
     Dosage: 60 MG, QD
     Route: 048
  2. MORPHINE SULFATE. [Concomitant]
     Active Substance: MORPHINE SULFATE
     Dosage: 30 MG, EACH EVENING
     Route: 048
  3. MORPHINE SULFATE. [Concomitant]
     Active Substance: MORPHINE SULFATE
     Dosage: 60 MG, EACH MORNING
     Route: 048

REACTIONS (8)
  - Paraesthesia [Unknown]
  - Dizziness [Unknown]
  - Headache [Unknown]
  - Affect lability [Unknown]
  - Nausea [Unknown]
  - Drug withdrawal syndrome [Unknown]
  - Migraine [Unknown]
  - Insomnia [Unknown]
